FAERS Safety Report 9014067 (Version 3)
Quarter: 2013Q1

REPORT INFORMATION
  Report Type: Spontaneous
  Country: JP (occurrence: JP)
  Receive Date: 20130115
  Receipt Date: 20130215
  Transmission Date: 20140127
  Serious: Yes (Hospitalization)
  Sender: FDA-Public Use
  Company Number: JP-PFIZER INC-2013009869

PATIENT
  Age: 6 Decade
  Sex: Female

DRUGS (5)
  1. JZOLOFT [Suspect]
     Dosage: 25 MG/DAY
     Route: 048
     Dates: start: 20120412, end: 20120419
  2. JZOLOFT [Suspect]
     Dosage: 25 MG/DAY
     Route: 048
     Dates: start: 20120509, end: 20120515
  3. JZOLOFT [Suspect]
     Dosage: 50 MG/DAY
     Route: 048
     Dates: start: 20120516, end: 20120530
  4. JZOLOFT [Suspect]
     Dosage: 25 MG/DAY
     Route: 048
     Dates: start: 20120531, end: 20120610
  5. CLOMIPRAMINE [Suspect]
     Dosage: 25 MG, UNK
     Route: 041

REACTIONS (1)
  - Affective disorder [Recovered/Resolved]
